FAERS Safety Report 18710620 (Version 2)
Quarter: 2021Q1

REPORT INFORMATION
  Report Type: Spontaneous
  Country: US (occurrence: US)
  Receive Date: 20210107
  Receipt Date: 20210112
  Transmission Date: 20210419
  Serious: Yes (Hospitalization, Other)
  Sender: FDA-Public Use
  Company Number: US-VELOXIS PHARMACEUTICALS-2020VELUS-001094

PATIENT
  Age: 76 Year
  Sex: Male

DRUGS (2)
  1. ENVARSUS XR [Suspect]
     Active Substance: TACROLIMUS
     Indication: PROPHYLAXIS AGAINST TRANSPLANT REJECTION
     Dosage: UNK
  2. ENVARSUS XR [Suspect]
     Active Substance: TACROLIMUS
     Indication: IMMUNOSUPPRESSANT DRUG THERAPY

REACTIONS (13)
  - Pyrexia [Unknown]
  - Nausea [Unknown]
  - Pollakiuria [Unknown]
  - Blood creatinine increased [Not Recovered/Not Resolved]
  - Vomiting [Unknown]
  - Respiratory failure [Unknown]
  - Diarrhoea [Unknown]
  - Cytokine storm [Not Recovered/Not Resolved]
  - Condition aggravated [Not Recovered/Not Resolved]
  - Drug level above therapeutic [Not Recovered/Not Resolved]
  - Toxicity to various agents [Not Recovered/Not Resolved]
  - Blood lactic acid increased [Recovering/Resolving]
  - Oliguria [Unknown]

NARRATIVE: CASE EVENT DATE: 20200322
